FAERS Safety Report 19362017 (Version 1)
Quarter: 2021Q2

REPORT INFORMATION
  Report Type: Report from Study
  Country: US (occurrence: US)
  Receive Date: 20210601
  Receipt Date: 20210601
  Transmission Date: 20210717
  Serious: Yes (Other)
  Sender: FDA-Public Use
  Company Number: US-MYLANLABS-2021M1031010

PATIENT
  Age: 80 Year
  Sex: Female
  Weight: 78 kg

DRUGS (1)
  1. YUPELRI [Suspect]
     Active Substance: REVEFENACIN
     Indication: CHRONIC OBSTRUCTIVE PULMONARY DISEASE
     Dosage: 175 MCG/3ML
     Route: 055
     Dates: end: 20210413

REACTIONS (3)
  - Constipation [Unknown]
  - Therapy cessation [Unknown]
  - Urinary retention [Unknown]

NARRATIVE: CASE EVENT DATE: 20210413
